FAERS Safety Report 4989088-7 (Version None)
Quarter: 2006Q2

REPORT INFORMATION
  Report Type: 
  Country: None (occurrence: None)
  Receive Date: 20060425
  Receipt Date: 20050829
  Transmission Date: 20061013
  Serious: Yes (Other)
  Sender: FDA-Public Use
  Company Number: 8011420

PATIENT
  Age: 26 Year
  Sex: Male
  Weight: 61.5 kg

DRUGS (8)
  1. KEPPRA [Suspect]
     Indication: GRAND MAL CONVULSION
     Dosage: 500 MG 2/D PO
     Route: 048
     Dates: start: 20050601, end: 20050819
  2. KEPPRA [Suspect]
     Indication: GRAND MAL CONVULSION
     Dosage: 1500 MG ONCE PO
     Route: 048
     Dates: start: 20050819, end: 20050819
  3. DILANTIN [Concomitant]
  4. DEPAKOTE [Concomitant]
  5. KEPPRA [Suspect]
     Indication: GRAND MAL CONVULSION
     Dosage: 500 MG 2/D PO
     Route: 048
     Dates: start: 20050820
  6. PROTONIX [Concomitant]
  7. VITAMIN B-12 [Concomitant]
  8. TETRACYCLINE [Concomitant]

REACTIONS (7)
  - ACCIDENTAL OVERDOSE [None]
  - ADRENAL DISORDER [None]
  - ANXIETY [None]
  - DIZZINESS [None]
  - MEMORY IMPAIRMENT [None]
  - SKIN WARM [None]
  - SOMNOLENCE [None]
